FAERS Safety Report 17122521 (Version 2)
Quarter: 2020Q1

REPORT INFORMATION
  Report Type: Spontaneous
  Country: US (occurrence: US)
  Receive Date: 20191206
  Receipt Date: 20200305
  Transmission Date: 20200409
  Serious: No
  Sender: FDA-Public Use
  Company Number: US-ROCHE-2359573

PATIENT
  Sex: Female

DRUGS (5)
  1. AROMASIN [Concomitant]
     Active Substance: EXEMESTANE
     Dosage: JULY 25TH TO OCT 17TH AND
     Route: 065
  2. HERCEPTIN [Suspect]
     Active Substance: TRASTUZUMAB
     Indication: BREAST CANCER
     Route: 065
     Dates: start: 201802
  3. GABAPENTIN. [Concomitant]
     Active Substance: GABAPENTIN
  4. TAXOL [Concomitant]
     Active Substance: PACLITAXEL
     Dosage: JULY 25TH TO OCT 17TH AND
     Route: 065
  5. LETROZOLE. [Concomitant]
     Active Substance: LETROZOLE

REACTIONS (2)
  - Bone pain [Not Recovered/Not Resolved]
  - Myalgia [Not Recovered/Not Resolved]
